FAERS Safety Report 10143722 (Version 1)
Quarter: 2014Q2

REPORT INFORMATION
  Report Type: Spontaneous
  Country: IT (occurrence: IT)
  Receive Date: 20140430
  Receipt Date: 20140430
  Transmission Date: 20141212
  Serious: Yes (Other)
  Sender: FDA-Public Use
  Company Number: IT-PFIZER INC-2014118323

PATIENT
  Sex: Male

DRUGS (1)
  1. XANAX [Suspect]
     Dosage: UNK

REACTIONS (1)
  - Poisoning [Unknown]
